FAERS Safety Report 8048959-8 (Version None)
Quarter: 2012Q1

REPORT INFORMATION
  Report Type: 
  Country: None (occurrence: None)
  Receive Date: 20120117
  Receipt Date: 20120111
  Transmission Date: 20120608
  Serious: Yes (Death)
  Sender: FDA-Public Use
  Company Number: PHHY2012EC002642

PATIENT
  Sex: Female

DRUGS (2)
  1. MEMANTINE [Concomitant]
     Dosage: UNK UKN, UNK
  2. ZADITEN [Suspect]
     Dosage: 0.025 %, UNK
     Route: 047
     Dates: start: 20110401

REACTIONS (1)
  - DEATH [None]
